FAERS Safety Report 17888118 (Version 1)
Quarter: 2020Q2

REPORT INFORMATION
  Report Type: Spontaneous
  Country: DE (occurrence: DE)
  Receive Date: 20200612
  Receipt Date: 20200612
  Transmission Date: 20200714
  Serious: Yes (Other)
  Sender: FDA-Public Use
  Company Number: DE-DRREDDYS-GER/GER/20/0123554

PATIENT
  Age: 81 Year
  Sex: Female

DRUGS (1)
  1. MEMANTINHYDROCHLORID BETA 10MG FILMTABLETTEN [Suspect]
     Active Substance: MEMANTINE HYDROCHLORIDE
     Indication: GLAUCOMA
     Route: 048
     Dates: start: 2015

REACTIONS (4)
  - Off label use [Unknown]
  - Drug ineffective [Unknown]
  - Dementia [Not Recovered/Not Resolved]
  - Withdrawal syndrome [Not Recovered/Not Resolved]

NARRATIVE: CASE EVENT DATE: 2015
